FAERS Safety Report 5869801-7 (Version None)
Quarter: 2008Q3

REPORT INFORMATION
  Report Type: 
  Country: None (occurrence: None)
  Receive Date: 20080902
  Receipt Date: 20080821
  Transmission Date: 20090109
  Serious: Yes (Other)
  Sender: FDA-Public Use
  Company Number: US-GDP-08404209

PATIENT
  Age: 27 Year
  Sex: Female
  Weight: 58.9676 kg

DRUGS (2)
  1. ORACEA [Suspect]
     Indication: ROSACEA
     Dosage: (40 MG QD ORAL)
     Route: 048
     Dates: start: 20070601, end: 20080501
  2. PROTONIX [Concomitant]

REACTIONS (3)
  - BACTERIA STOOL IDENTIFIED [None]
  - DISEASE RECURRENCE [None]
  - PSEUDOMEMBRANOUS COLITIS [None]
